FAERS Safety Report 13233349 (Version 1)
Quarter: 2017Q1

REPORT INFORMATION
  Report Type: Report from Study
  Country: BR (occurrence: BR)
  Receive Date: 20170215
  Receipt Date: 20170215
  Transmission Date: 20170428
  Serious: Yes (Death, Hospitalization, Other)
  Sender: FDA-Public Use
  Company Number: US-ASTRAZENECA-2016SF22837

PATIENT
  Age: 3 Month
  Sex: Male
  Weight: 4.2 kg

DRUGS (6)
  1. PROPRANOLOL [Concomitant]
     Active Substance: PROPRANOLOL HYDROCHLORIDE
     Indication: HEART DISEASE CONGENITAL
     Route: 048
     Dates: start: 20160704
  2. FUROSEMIDE. [Concomitant]
     Active Substance: FUROSEMIDE
     Indication: HEART DISEASE CONGENITAL
     Route: 048
  3. RETINOL ACETATE/CHOLECALCIFEROL (AD-TIL) [Concomitant]
     Indication: VITAMIN D DEFICIENCY
     Dosage: EVERY DAY
     Route: 048
     Dates: start: 20160704
  4. SPIRONOLACTONE. [Concomitant]
     Active Substance: SPIRONOLACTONE
     Indication: LUNG DISORDER
     Route: 048
     Dates: start: 20160704
  5. FERROUS SULFATE. [Concomitant]
     Active Substance: FERROUS SULFATE
     Indication: MINERAL SUPPLEMENTATION
     Dosage: EVERY DAY
     Route: 048
     Dates: start: 20160704
  6. SYNAGIS [Suspect]
     Active Substance: PALIVIZUMAB
     Indication: HEART DISEASE CONGENITAL
     Dosage: 15 MG/KG
     Route: 030
     Dates: start: 20160805

REACTIONS (7)
  - Anaemia [Recovered/Resolved]
  - Developmental delay [Unknown]
  - Wheezing [Recovering/Resolving]
  - Fatigue [Recovering/Resolving]
  - Death [Fatal]
  - Pneumonia [Recovering/Resolving]
  - Renal disorder [Unknown]

NARRATIVE: CASE EVENT DATE: 201610
